FAERS Safety Report 8452033-6 (Version None)
Quarter: 2012Q2

REPORT INFORMATION
  Report Type: 
  Country: None (occurrence: None)
  Receive Date: 20120620
  Receipt Date: 20120328
  Transmission Date: 20120825
  Serious: No
  Sender: FDA-Public Use
  Company Number: US-VERTEX PHARMACEUTICALS INC.-AE-2012-004566

PATIENT
  Sex: Female
  Weight: 92.616 kg

DRUGS (11)
  1. METOPROLOL SUCCINATE [Concomitant]
     Indication: HYPERTENSION
     Route: 048
  2. PEGASYS [Concomitant]
     Indication: HEPATITIS C
     Route: 058
     Dates: start: 20120229
  3. OMEPRAZOLE [Concomitant]
     Indication: GASTROOESOPHAGEAL REFLUX DISEASE
     Route: 048
  4. INCIVEK [Suspect]
     Indication: HEPATITIS C
     Route: 048
     Dates: start: 20120301
  5. PAXIL [Concomitant]
     Indication: DEPRESSION
     Route: 048
  6. MEDROLE DOSE PACK [Concomitant]
  7. HYDROCODONE BITARTRATE AND ACETAMINOPHEN [Concomitant]
     Indication: ARTHRITIS
     Route: 048
  8. HYDROCHLOROTHIAZIDE [Concomitant]
     Indication: HYPERTENSION
     Route: 048
  9. RIBAVIRIN [Concomitant]
     Indication: HEPATITIS C
     Route: 048
     Dates: start: 20120301
  10. GABAPENTIN [Concomitant]
     Indication: NEURALGIA
     Route: 048
  11. ONE-A-DAY FOR WOMEN [Concomitant]
     Indication: SUPPLEMENTATION THERAPY

REACTIONS (6)
  - EYE DISCHARGE [None]
  - LOCAL SWELLING [None]
  - DYSGEUSIA [None]
  - OCULAR HYPERAEMIA [None]
  - STOMATITIS [None]
  - SWELLING FACE [None]
